FAERS Safety Report 6139885-X (Version None)
Quarter: 2009Q1

REPORT INFORMATION
  Report Type: 
  Country: None (occurrence: None)
  Receive Date: 20090324
  Receipt Date: 20090325
  Transmission Date: 20090719
  Serious: Yes (Death)
  Sender: FDA-Public Use
  Company Number: FABR-1000731

PATIENT

DRUGS (1)
  1. FABRAZYME 9AGALSIDASE BETA) POWDER FOR SOLUTION FOR INFUSION [Suspect]
     Indication: FABRY'S DISEASE
     Dosage: INTRAVENOUS
     Route: 042

REACTIONS (1)
  - DEATH [None]
